FAERS Safety Report 5333390-6 (Version None)
Quarter: 2007Q1

REPORT INFORMATION
  Report Type: 
  Country: None (occurrence: None)
  Receive Date: 20070306
  Receipt Date: 20060113
  Transmission Date: 20070707
  Serious: Yes (Hospitalization)
  Sender: FDA-Public Use
  Company Number: A03200600312

PATIENT
  Age: 45 Year
  Sex: Male

DRUGS (5)
  1. PLAVIX [Suspect]
     Indication: CORONARY ARTERIAL STENT INSERTION
     Dosage: 75 MG QD - ORAL
     Route: 048
     Dates: start: 20040831
  2. METOPROLOL SUCCINATE [Concomitant]
  3. LISINOPRIL [Concomitant]
  4. ACETYLSALICYLIC ACID SRT [Concomitant]
  5. ALPRAZOLAM [Concomitant]

REACTIONS (3)
  - COGNITIVE DISORDER [None]
  - HEAD DISCOMFORT [None]
  - MYOCARDIAL INFARCTION [None]
